FAERS Safety Report 15726472 (Version 2)
Quarter: 2018Q4

REPORT INFORMATION
  Report Type: Spontaneous
  Country: US (occurrence: US)
  Receive Date: 20181217
  Receipt Date: 20181217
  Transmission Date: 20190205
  Serious: Yes (Hospitalization)
  Sender: FDA-Public Use
  Company Number: US-NOVOPROD-575836

PATIENT
  Age: 74 Year
  Sex: Female

DRUGS (4)
  1. LEVEMIR [Suspect]
     Active Substance: INSULIN DETEMIR
     Dosage: 22 U, QD (ONCE AT NIGHT) WHEN HER BLOOD SUGAR IS NOT HIGH
     Route: 058
  2. LEVEMIR [Suspect]
     Active Substance: INSULIN DETEMIR
     Indication: TYPE 2 DIABETES MELLITUS
     Dosage: 50 U, TID (WHEN HER BLOOD SUGAR IS HIGH)
     Route: 058
     Dates: start: 2016
  3. LEVEMIR [Suspect]
     Active Substance: INSULIN DETEMIR
     Indication: TYPE 2 DIABETES MELLITUS
     Dosage: 50 UNITS 3 TIMES A DAY (WHEN HER BLOOD SUGAR IS HIGH)
     Route: 058
     Dates: start: 2016
  4. LEVEMIR [Suspect]
     Active Substance: INSULIN DETEMIR
     Dosage: 22 U, QD (ONCE AT NIGHT) WHEN HER BLOOD SUGAR IS NOT HIGH
     Route: 058

REACTIONS (5)
  - Device issue [Recovered/Resolved]
  - Bronchitis [Not Recovered/Not Resolved]
  - Nasopharyngitis [Not Recovered/Not Resolved]
  - Blood glucose increased [Recovered/Resolved]
  - Product dose omission [Unknown]

NARRATIVE: CASE EVENT DATE: 201710
